FAERS Safety Report 6705458-0 (Version None)
Quarter: 2010Q2

REPORT INFORMATION
  Report Type: 
  Country: None (occurrence: None)
  Receive Date: 20100503
  Receipt Date: 20100421
  Transmission Date: 20101027
  Serious: No
  Sender: FDA-Public Use
  Company Number: US-BIOGENIDEC-2010BI013859

PATIENT
  Age: 30 Year
  Sex: Male

DRUGS (1)
  1. TYSABRI [Suspect]
     Indication: MULTIPLE SCLEROSIS
     Route: 042
     Dates: start: 20091111, end: 20100303

REACTIONS (7)
  - BALANCE DISORDER [None]
  - EATING DISORDER [None]
  - FALL [None]
  - GENERAL SYMPTOM [None]
  - HEMIPARESIS [None]
  - MOBILITY DECREASED [None]
  - TREMOR [None]
